FAERS Safety Report 9218240 (Version 1)
Quarter: 2013Q2

REPORT INFORMATION
  Report Type: Spontaneous
  Country: US (occurrence: US)
  Receive Date: 20130408
  Receipt Date: 20130408
  Transmission Date: 20140414
  Serious: No
  Sender: FDA-Public Use
  Company Number: US-009507513-1304USA002604

PATIENT
  Sex: Male

DRUGS (1)
  1. PRINZIDE [Suspect]
     Route: 048

REACTIONS (3)
  - Drug hypersensitivity [Unknown]
  - Blood pressure inadequately controlled [Unknown]
  - Drug hypersensitivity [Unknown]
